FAERS Safety Report 7592088-4 (Version None)
Quarter: 2011Q3

REPORT INFORMATION
  Report Type: 
  Country: None (occurrence: None)
  Receive Date: 20110705
  Receipt Date: 20110705
  Transmission Date: 20111222
  Serious: No
  Sender: FDA-Public Use
  Company Number: None

PATIENT
  Age: 66 Year
  Sex: Female
  Weight: 68.0396 kg

DRUGS (1)
  1. ANASTRAZOLE [Suspect]
     Indication: BREAST CANCER IN SITU
     Dosage: 1MG 1 DAY
     Dates: start: 20101222, end: 20110630

REACTIONS (1)
  - DEAFNESS NEUROSENSORY [None]
